FAERS Safety Report 8422220-1 (Version None)
Quarter: 2012Q2

REPORT INFORMATION
  Report Type: 
  Country: None (occurrence: None)
  Receive Date: 20120608
  Receipt Date: 20120530
  Transmission Date: 20120825
  Serious: Yes (Other)
  Sender: FDA-Public Use
  Company Number: ES-BAYER-2012-051767

PATIENT
  Age: 62 Year
  Sex: Male
  Weight: 79 kg

DRUGS (2)
  1. ANTINEOPLASTIC AGENTS [Concomitant]
  2. PRIMOVIST [Suspect]
     Indication: NUCLEAR MAGNETIC RESONANCE IMAGING
     Dosage: UNK
     Dates: start: 20120502, end: 20120502

REACTIONS (7)
  - HEPATITIS TOXIC [None]
  - BLOOD BILIRUBIN INCREASED [None]
  - JAUNDICE [None]
  - ABDOMINAL DISTENSION [None]
  - CHROMATURIA [None]
  - TRANSAMINASES INCREASED [None]
  - DEFICIENCY OF BILE SECRETION [None]
